FAERS Safety Report 6139139-1 (Version None)
Quarter: 2009Q2

REPORT INFORMATION
  Report Type: 
  Country: None (occurrence: None)
  Receive Date: 20090401
  Receipt Date: 20090320
  Transmission Date: 20091009
  Serious: Yes (Other)
  Sender: FDA-Public Use
  Company Number: US-PFIZER INC-2009187738

PATIENT
  Sex: Male
  Weight: 118.64 kg

DRUGS (8)
  1. CHANTIX [Suspect]
     Indication: SMOKING CESSATION THERAPY
     Dosage: 0.5 MG, 1X/DAY
     Dates: start: 20090316
  2. ATENOLOL [Concomitant]
  3. BUSPAR [Concomitant]
  4. GABAPENTIN [Concomitant]
  5. OXYCODONE [Concomitant]
  6. TRAMADOL [Concomitant]
  7. OMEPRAZOLE [Concomitant]
  8. TESTOSTERONE [Concomitant]

REACTIONS (2)
  - AGITATION [None]
  - SUICIDAL IDEATION [None]
